FAERS Safety Report 7878058-7 (Version None)
Quarter: 2011Q4

REPORT INFORMATION
  Report Type: 
  Country: None (occurrence: None)
  Receive Date: 20111101
  Receipt Date: 20111020
  Transmission Date: 20120403
  Serious: Yes (Hospitalization)
  Sender: FDA-Public Use
  Company Number: US-BIOGENIDEC-2011BI040477

PATIENT
  Age: 53 Year
  Sex: Female

DRUGS (1)
  1. TYSABRI [Suspect]
     Indication: MULTIPLE SCLEROSIS
     Route: 042
     Dates: start: 20080714

REACTIONS (14)
  - SURGERY [None]
  - TOOTH FRACTURE [None]
  - HAEMATOCHEZIA [None]
  - CHRONIC OBSTRUCTIVE PULMONARY DISEASE [None]
  - WEIGHT DECREASED [None]
  - TOOTH ABSCESS [None]
  - FATIGUE [None]
  - HYPOAESTHESIA [None]
  - OESOPHAGEAL DILATATION [None]
  - VITAMIN D DECREASED [None]
  - DRUG INEFFECTIVE [None]
  - ASTHENIA [None]
  - RIB FRACTURE [None]
  - HEADACHE [None]
